FAERS Safety Report 8829900 (Version 1)
Quarter: 2012Q4

REPORT INFORMATION
  Report Type: Report from Study
  Country: TH (occurrence: TH)
  Receive Date: 20121008
  Receipt Date: 20121008
  Transmission Date: 20130627
  Serious: Yes (Hospitalization)
  Sender: FDA-Public Use
  Company Number: TH-BAXTER-2012BAX018614

PATIENT
  Age: 54 Year
  Sex: Female
  Weight: 64 kg

DRUGS (8)
  1. ENDOXAN [Suspect]
     Indication: DIFFUSE LARGE B-CELL LYMPHOMA
     Route: 042
     Dates: start: 20120405
  2. ENDOXAN [Suspect]
     Route: 042
     Dates: start: 20120503, end: 20120503
  3. DOXORUBICIN [Suspect]
     Indication: DIFFUSE LARGE B-CELL LYMPHOMA
     Route: 042
     Dates: start: 20120405
  4. DOXORUBICIN [Suspect]
     Route: 042
     Dates: start: 20120503, end: 20120503
  5. VINCRISTINE [Suspect]
     Indication: DIFFUSE LARGE B-CELL LYMPHOMA
     Route: 042
     Dates: start: 20120405
  6. VINCRISTINE [Suspect]
     Route: 042
     Dates: start: 20120503, end: 20120503
  7. PREDNISOLONE [Suspect]
     Indication: DIFFUSE LARGE B-CELL LYMPHOMA
     Route: 048
     Dates: start: 20120405
  8. PREDNISOLONE [Suspect]
     Route: 048
     Dates: start: 20120507, end: 20120507

REACTIONS (1)
  - Herpes zoster disseminated [Recovered/Resolved]
